FAERS Safety Report 6818529 (Version 1)
Quarter: 2020Q3

REPORT INFORMATION
  Report Type: Report from Study
  Country: US (occurrence: US)
  Receive Date: 20081121
  Receipt Date: 20081121
  Transmission Date: 20201104
  Serious: Yes (Other)
  Sender: FDA-Public Use
  Company Number: US-ROCHE-596306

PATIENT

DRUGS (3)
  1. NAPROXEN SODIUM. [Suspect]
     Active Substance: NAPROXEN SODIUM
     Indication: PRODUCT USED FOR UNKNOWN INDICATION
     Route: 065
  2. DICLOFENAC SODIUM\MISOPROSTOL [Suspect]
     Active Substance: DICLOFENAC SODIUM\MISOPROSTOL
     Indication: PRODUCT USED FOR UNKNOWN INDICATION
     Route: 065
  3. IBANDRONIC ACID. [Suspect]
     Active Substance: IBANDRONIC ACID
     Indication: COMPLEX REGIONAL PAIN SYNDROME
     Dosage: RECEIVED FOR 3 DAYS FOLLOWED BY A 4?WEEK FOLLOW?UP PERIOD, FORM INFUSION
     Route: 065

REACTIONS (1)
  - Glomerular filtration rate decreased [Recovered/Resolved]
